FAERS Safety Report 4312829-9 (Version None)
Quarter: 2004Q1

REPORT INFORMATION
  Report Type: 
  Country: None (occurrence: None)
  Receive Date: 20040304
  Receipt Date: 20040217
  Transmission Date: 20041129
  Serious: Yes (Death)
  Sender: FDA-Public Use
  Company Number: 8005381

PATIENT
  Age: 66 Year
  Sex: Male

DRUGS (15)
  1. THEOPHYLLINE [Suspect]
  2. PREDNISOLONE [Suspect]
     Dosage: PO
     Route: 048
  3. ASPIRIN [Suspect]
     Dosage: PO
     Route: 048
  4. BUDESONOID [Suspect]
     Dosage: PO
     Route: 048
  5. FOSFESTROL [Suspect]
     Dosage: PO
     Route: 048
  6. ENALAPRIL MALEATE [Concomitant]
  7. HYDROCHLOROTHIAZID [Concomitant]
  8. OMEPRAZOLE [Concomitant]
  9. FUROSEMIDE [Concomitant]
  10. FENOTEROL [Concomitant]
  11. DIGOXIN [Concomitant]
  12. FORMOTEROL [Concomitant]
  13. MELPERON [Concomitant]
  14. TRIMIORAMEN [Concomitant]
  15. TEMAZEPAM [Concomitant]

REACTIONS (9)
  - CAMPYLOBACTER INFECTION [None]
  - HEPATIC STEATOSIS [None]
  - HYPOGAMMAGLOBULINAEMIA [None]
  - IMMUNODEFICIENCY COMMON VARIABLE [None]
  - PERICARDIAL EFFUSION [None]
  - PLEURAL EFFUSION [None]
  - PNEUMONIA [None]
  - RESPIRATORY FAILURE [None]
  - SEPSIS [None]
